FAERS Safety Report 20310967 (Version 24)
Quarter: 2024Q4

REPORT INFORMATION
  Report Type: Spontaneous
  Country: PL (occurrence: PL)
  Receive Date: 20220107
  Receipt Date: 20241216
  Transmission Date: 20250115
  Serious: Yes (Hospitalization, Disabling, Other)
  Sender: BAUSCH AND LOMB
  Company Number: PL-BAUSCH-BL-2021-036935

PATIENT
  Age: 83 Year
  Sex: Female
  Weight: 91 kg

DRUGS (129)
  1. METFORMIN [Interacting]
     Active Substance: METFORMIN HYDROCHLORIDE
     Indication: Type 2 diabetes mellitus
     Route: 048
  2. METFORMIN [Interacting]
     Active Substance: METFORMIN HYDROCHLORIDE
     Route: 065
  3. ALBUTEROL [Interacting]
     Active Substance: ALBUTEROL
     Indication: Product used for unknown indication
     Dosage: ON DEMAND, INTERMITTENTLY, PRN
     Route: 065
  4. ALBUTEROL [Interacting]
     Active Substance: ALBUTEROL
     Route: 065
  5. ALBUTEROL [Interacting]
     Active Substance: ALBUTEROL
     Route: 048
  6. ATORVASTATIN [Interacting]
     Active Substance: ATORVASTATIN
     Indication: Product used for unknown indication
     Dosage: 0-0-1
     Route: 065
  7. ATORVASTATIN [Interacting]
     Active Substance: ATORVASTATIN
     Route: 065
  8. ATORVASTATIN [Interacting]
     Active Substance: ATORVASTATIN
     Dosage: 0-0-1; UNKNOWN
     Route: 065
  9. ATORVASTATIN [Interacting]
     Active Substance: ATORVASTATIN
     Dosage: 0-0-1
     Route: 048
  10. CITALOPRAM [Interacting]
     Active Substance: CITALOPRAM
     Indication: Depression
     Dosage: 0-0-1
     Route: 048
  11. CITALOPRAM [Interacting]
     Active Substance: CITALOPRAM
     Dosage: 1-0-0
     Route: 065
  12. METOPROLOL [Interacting]
     Active Substance: METOPROLOL
     Indication: Hypertension
     Dosage: DOSAGE SCHEDULE: 1-0-1
     Route: 065
  13. METOPROLOL [Interacting]
     Active Substance: METOPROLOL
     Indication: Type 2 diabetes mellitus
     Dosage: DOSAGE SCHEDULE: 1-0-1/2 (DOSE REDUCE); AT LEAST FOR 2 YEARS
     Route: 065
  14. METOPROLOL [Interacting]
     Active Substance: METOPROLOL
     Route: 048
  15. METOPROLOL [Interacting]
     Active Substance: METOPROLOL
     Dosage: 1-0-1
     Route: 065
  16. HYDROXYZINE [Interacting]
     Active Substance: HYDROXYZINE HYDROCHLORIDE
     Indication: Product used for unknown indication
     Dosage: DOSAGE SCHEDULE: ON DEMAND, TYPICALLY 2 X/24 H
     Route: 065
  17. HYDROXYZINE [Interacting]
     Active Substance: HYDROXYZINE HYDROCHLORIDE
     Route: 065
  18. HYDROXYZINE [Interacting]
     Active Substance: HYDROXYZINE HYDROCHLORIDE
     Route: 048
  19. HYDROXYZINE [Interacting]
     Active Substance: HYDROXYZINE HYDROCHLORIDE
     Route: 065
  20. HYDROXYZINE [Interacting]
     Active Substance: HYDROXYZINE HYDROCHLORIDE
     Route: 065
  21. HYDROXYZINE [Interacting]
     Active Substance: HYDROXYZINE HYDROCHLORIDE
     Dosage: WHEN NECESSARY, ON AVERAGE 2/24 H
     Route: 065
  22. RAMIPRIL [Interacting]
     Active Substance: RAMIPRIL
     Indication: Cardiac failure
     Dosage: (1-0-0, ATLEAST FOR 2 YEARS)
     Route: 048
  23. RAMIPRIL [Interacting]
     Active Substance: RAMIPRIL
     Route: 065
  24. RAMIPRIL [Interacting]
     Active Substance: RAMIPRIL
     Route: 065
  25. RAMIPRIL [Interacting]
     Active Substance: RAMIPRIL
     Route: 065
  26. ZOLPIDEM [Interacting]
     Active Substance: ZOLPIDEM TARTRATE
     Indication: Depression
     Dosage: (0-0-1 )
     Route: 065
  27. ZOLPIDEM [Interacting]
     Active Substance: ZOLPIDEM TARTRATE
     Route: 065
  28. ZOLPIDEM [Interacting]
     Active Substance: ZOLPIDEM TARTRATE
     Dosage: 0-0-1
     Route: 065
  29. ZOLPIDEM [Interacting]
     Active Substance: ZOLPIDEM TARTRATE
     Route: 065
  30. ZOLPIDEM [Interacting]
     Active Substance: ZOLPIDEM TARTRATE
     Route: 048
  31. OMEPRAZOLE [Interacting]
     Active Substance: OMEPRAZOLE
     Indication: Product used for unknown indication
     Dosage: 1-1-0
     Route: 048
  32. OMEPRAZOLE [Interacting]
     Active Substance: OMEPRAZOLE
     Route: 065
  33. OMEPRAZOLE [Interacting]
     Active Substance: OMEPRAZOLE
     Dosage: 1-1-0
     Route: 065
  34. OMEPRAZOLE [Interacting]
     Active Substance: OMEPRAZOLE
     Route: 065
  35. ALPRAZOLAM [Interacting]
     Active Substance: ALPRAZOLAM
     Indication: Depression
     Dosage: ON DEMAND, TYPICALLY 2/24 H
     Route: 065
  36. ALPRAZOLAM [Interacting]
     Active Substance: ALPRAZOLAM
     Dosage: WHEN NECESSARY, ON AVERAGE 2/24 H
     Route: 065
  37. ALPRAZOLAM [Interacting]
     Active Substance: ALPRAZOLAM
     Route: 065
  38. ALPRAZOLAM [Interacting]
     Active Substance: ALPRAZOLAM
     Route: 065
  39. ALPRAZOLAM [Interacting]
     Active Substance: ALPRAZOLAM
     Dosage: IF NEEDED
     Route: 048
  40. ALPRAZOLAM [Interacting]
     Active Substance: ALPRAZOLAM
     Dosage: QD/0,5 MG, ADHOC, USUALLY
     Route: 065
  41. ALPRAZOLAM [Interacting]
     Active Substance: ALPRAZOLAM
     Route: 065
  42. ISOSORBIDE MONONITRATE [Interacting]
     Active Substance: ISOSORBIDE MONONITRATE
     Indication: Product used for unknown indication
     Dosage: ON DEMAND, TYPICALLY 1-2 X/24 H
     Route: 065
  43. ISOSORBIDE MONONITRATE [Interacting]
     Active Substance: ISOSORBIDE MONONITRATE
     Dosage: BID
     Route: 065
  44. ISOSORBIDE MONONITRATE [Interacting]
     Active Substance: ISOSORBIDE MONONITRATE
     Dosage: ADHOC, USUALLY,1-2 TABLETS A DAY
     Route: 065
  45. ISOSORBIDE MONONITRATE [Interacting]
     Active Substance: ISOSORBIDE MONONITRATE
     Dosage: AS NEEDED, AV. ONCE/TWICE, DAILY
     Route: 065
  46. ALLOPURINOL [Interacting]
     Active Substance: ALLOPURINOL
     Indication: Product used for unknown indication
     Dosage: 1-0-0
     Route: 065
  47. FUROSEMIDE [Interacting]
     Active Substance: FUROSEMIDE
     Indication: Product used for unknown indication
     Dosage: 3 DF (3 TABLETS EVERY 2ND DAY). 120 MG
     Route: 065
  48. SPIRONOLACTONE [Interacting]
     Active Substance: SPIRONOLACTONE
     Indication: Product used for unknown indication
     Dosage: 0-1-0
     Route: 065
  49. HYDROCHLOROTHIAZIDE [Interacting]
     Active Substance: HYDROCHLOROTHIAZIDE
     Indication: Product used for unknown indication
     Dosage: 1-0-0
     Route: 065
  50. HYDROCHLOROTHIAZIDE [Interacting]
     Active Substance: HYDROCHLOROTHIAZIDE
     Dosage: 1-0-0
     Route: 048
  51. HYDROCHLOROTHIAZIDE [Interacting]
     Active Substance: HYDROCHLOROTHIAZIDE
     Route: 065
  52. HYDROCHLOROTHIAZIDE [Interacting]
     Active Substance: HYDROCHLOROTHIAZIDE
     Dosage: QD
     Route: 065
  53. HYDROCHLOROTHIAZIDE [Interacting]
     Active Substance: HYDROCHLOROTHIAZIDE
     Dosage: BID
     Route: 065
  54. LEVOTHYROXINE [Interacting]
     Active Substance: LEVOTHYROXINE
     Indication: Product used for unknown indication
     Dosage: 1-0-0
     Route: 065
  55. BETAHISTINE [Interacting]
     Active Substance: BETAHISTINE
     Indication: Product used for unknown indication
     Dosage: 0-1-0
     Route: 065
  56. BETAHISTINE [Interacting]
     Active Substance: BETAHISTINE
     Route: 048
  57. BETAHISTINE [Interacting]
     Active Substance: BETAHISTINE
     Route: 065
  58. BETAHISTINE [Interacting]
     Active Substance: BETAHISTINE
     Route: 065
  59. BETAHISTINE [Interacting]
     Active Substance: BETAHISTINE
     Route: 065
  60. TRAMADOL [Interacting]
     Active Substance: TRAMADOL
     Indication: Pain
     Route: 065
  61. TRAMADOL [Interacting]
     Active Substance: TRAMADOL
     Route: 065
  62. TRAMADOL [Interacting]
     Active Substance: TRAMADOL
     Dosage: 2 DOSAGE FORM, PRN
     Route: 048
  63. TRAMADOL [Interacting]
     Active Substance: TRAMADOL
     Dosage: AS NECESSARY 2 TABLETS
     Route: 065
  64. TRAMADOL [Interacting]
     Active Substance: TRAMADOL
     Route: 065
  65. TRAMADOL [Interacting]
     Active Substance: TRAMADOL
     Route: 048
  66. ACETAMINOPHEN [Interacting]
     Active Substance: ACETAMINOPHEN
     Indication: Product used for unknown indication
     Dosage: (0.5 DAY) 1-0-1
     Route: 065
  67. ACETAMINOPHEN [Interacting]
     Active Substance: ACETAMINOPHEN
     Dosage: 0-0-1
     Route: 048
  68. ACETAMINOPHEN [Interacting]
     Active Substance: ACETAMINOPHEN
     Route: 065
  69. ACETAMINOPHEN [Interacting]
     Active Substance: ACETAMINOPHEN
     Route: 065
  70. DABIGATRAN [Interacting]
     Active Substance: DABIGATRAN
     Indication: Product used for unknown indication
     Dosage: 1-0-1 (0.5 DAY)
     Route: 065
  71. DABIGATRAN [Interacting]
     Active Substance: DABIGATRAN
     Dosage: 1-0-1
     Route: 048
  72. POTASSIUM CHLORIDE [Interacting]
     Active Substance: POTASSIUM CHLORIDE
     Indication: Product used for unknown indication
     Route: 065
  73. POTASSIUM CHLORIDE [Interacting]
     Active Substance: POTASSIUM CHLORIDE
     Route: 065
  74. POTASSIUM CHLORIDE [Interacting]
     Active Substance: POTASSIUM CHLORIDE
     Route: 065
  75. POTASSIUM CHLORIDE [Interacting]
     Active Substance: POTASSIUM CHLORIDE
     Dosage: 391 MG K+
     Route: 065
  76. POTASSIUM CHLORIDE [Interacting]
     Active Substance: POTASSIUM CHLORIDE
     Dosage: EVERY OTHER DAY
     Route: 048
  77. POTASSIUM CHLORIDE [Interacting]
     Active Substance: POTASSIUM CHLORIDE
     Route: 048
  78. DEXTROSE\NIKETHAMIDE [Interacting]
     Active Substance: DEXTROSE\NIKETHAMIDE
     Indication: Product used for unknown indication
     Dosage: 1,5 + 125 MG ON DEMAND
     Route: 065
  79. DEXTROSE\NIKETHAMIDE [Interacting]
     Active Substance: DEXTROSE\NIKETHAMIDE
     Route: 065
  80. DEXTROSE\NIKETHAMIDE [Interacting]
     Active Substance: DEXTROSE\NIKETHAMIDE
     Route: 065
  81. DEXTROSE\NIKETHAMIDE [Interacting]
     Active Substance: DEXTROSE\NIKETHAMIDE
     Dosage: 1.5 MILLIGRAM (INTERMITTENTLY)
     Route: 065
  82. DEXTROSE\NIKETHAMIDE [Interacting]
     Active Substance: DEXTROSE\NIKETHAMIDE
     Dosage: UNK, PRN
     Route: 065
  83. OMEPRAZOLE MAGNESIUM [Interacting]
     Active Substance: OMEPRAZOLE MAGNESIUM
     Indication: Product used for unknown indication
     Route: 048
  84. TRAMADOL HYDROCHLORIDE [Interacting]
     Active Substance: TRAMADOL HYDROCHLORIDE
     Indication: Product used for unknown indication
     Route: 065
  85. POTASSIUM CHLORIDE\RIBOFLAVIN 5^-PHOSPHATE SODIUM [Interacting]
     Active Substance: POTASSIUM CHLORIDE\RIBOFLAVIN 5^-PHOSPHATE SODIUM
     Indication: Product used for unknown indication
     Route: 065
  86. BETAHISTINE HYDROCHLORIDE [Interacting]
     Active Substance: BETAHISTINE HYDROCHLORIDE
     Indication: Product used for unknown indication
     Route: 065
  87. CITALOPRAM HYDROBROMIDE [Interacting]
     Active Substance: CITALOPRAM HYDROBROMIDE
     Indication: Product used for unknown indication
     Route: 065
  88. FUROSEMIDE [Interacting]
     Active Substance: FUROSEMIDE
     Indication: Product used for unknown indication
     Route: 065
  89. DABIGATRAN ETEXILATE [Interacting]
     Active Substance: DABIGATRAN ETEXILATE
     Indication: Product used for unknown indication
     Route: 065
  90. LEVOTHYROXINE SODIUM [Interacting]
     Active Substance: LEVOTHYROXINE SODIUM
     Indication: Product used for unknown indication
     Dosage: 1-0-1
     Route: 065
  91. DONEPEZIL [Suspect]
     Active Substance: DONEPEZIL
     Indication: Product used for unknown indication
     Route: 065
  92. BENSERAZIDE\LEVODOPA [Suspect]
     Active Substance: BENSERAZIDE\LEVODOPA
     Indication: Product used for unknown indication
     Route: 065
  93. QUETIAPINE [Suspect]
     Active Substance: QUETIAPINE
     Indication: Product used for unknown indication
     Route: 065
  94. GLICLAZIDE [Suspect]
     Active Substance: GLICLAZIDE
     Indication: Type 2 diabetes mellitus
     Dosage: (0.3 DAY) 1-1-1
     Route: 065
  95. GLICLAZIDE [Suspect]
     Active Substance: GLICLAZIDE
     Dosage: 3 DOSAGE FORM, QD, 1-1-1 3 DOSAGE FORM, QD, 1-1-1
     Route: 065
  96. GLICLAZIDE [Suspect]
     Active Substance: GLICLAZIDE
     Dosage: 180 MILLIGRAM, QD
     Route: 065
  97. GLICLAZIDE [Suspect]
     Active Substance: GLICLAZIDE
     Dosage: 60 MG, TID/1-1-1
     Route: 065
  98. METOCLOPRAMIDE [Interacting]
     Active Substance: METOCLOPRAMIDE
     Indication: Constipation
     Dosage: ON DEMAND IN THE EVENT OF CONSTIPATION (2 TABLETS), BUT FOR MANY MONTHS
     Route: 065
  99. METOCLOPRAMIDE [Interacting]
     Active Substance: METOCLOPRAMIDE
     Dosage: (INTERMITTENTLY IN CASE OF CONSTIPATION FOR MANY MONTHS)
     Route: 065
  100. METOCLOPRAMIDE [Interacting]
     Active Substance: METOCLOPRAMIDE
     Dosage: PRN
     Route: 048
  101. METOCLOPRAMIDE [Interacting]
     Active Substance: METOCLOPRAMIDE
     Dosage: AS NEEDED
     Route: 065
  102. METOCLOPRAMIDE [Interacting]
     Active Substance: METOCLOPRAMIDE
     Dosage: 10 MILLIGRAM, 2 TABLETS AS NEEDED, IN CASE OF CONSTIPATION, BUT FOR MANY MONTHS
     Route: 065
  103. METOCLOPRAMIDE [Interacting]
     Active Substance: METOCLOPRAMIDE
     Route: 065
  104. METOPROLOL [Concomitant]
     Active Substance: METOPROLOL
     Indication: Product used for unknown indication
  105. GLICLAZIDE [Concomitant]
     Active Substance: GLICLAZIDE
     Indication: Product used for unknown indication
  106. OMEPRAZOLE [Concomitant]
     Active Substance: OMEPRAZOLE
     Indication: Product used for unknown indication
  107. ISOSORBIDE MONONITRATE [Concomitant]
     Active Substance: ISOSORBIDE MONONITRATE
     Indication: Product used for unknown indication
  108. ALBUTEROL [Concomitant]
     Active Substance: ALBUTEROL
     Indication: Product used for unknown indication
  109. LEVOTHYROXINE [Concomitant]
     Active Substance: LEVOTHYROXINE
     Indication: Product used for unknown indication
  110. ACETAMINOPHEN [Concomitant]
     Active Substance: ACETAMINOPHEN
     Indication: Product used for unknown indication
  111. SPIRONOLACTONE [Concomitant]
     Active Substance: SPIRONOLACTONE
     Indication: Product used for unknown indication
  112. HYDROCHLOROTHIAZIDE [Concomitant]
     Active Substance: HYDROCHLOROTHIAZIDE
     Indication: Product used for unknown indication
  113. ATORVASTATIN [Concomitant]
     Active Substance: ATORVASTATIN
     Indication: Product used for unknown indication
  114. ALLOPURINOL [Concomitant]
     Active Substance: ALLOPURINOL
     Indication: Product used for unknown indication
  115. TORSEMIDE [Concomitant]
     Active Substance: TORSEMIDE
     Indication: Product used for unknown indication
  116. QUETIAPINE [Concomitant]
     Active Substance: QUETIAPINE
     Indication: Product used for unknown indication
  117. ZOLPIDEM [Concomitant]
     Active Substance: ZOLPIDEM TARTRATE
     Indication: Product used for unknown indication
  118. TRAMADOL [Concomitant]
     Active Substance: TRAMADOL
     Indication: Product used for unknown indication
  119. DEXTROSE [Concomitant]
     Active Substance: DEXTROSE MONOHYDRATE
     Indication: Product used for unknown indication
  120. DABIGATRAN [Concomitant]
     Active Substance: DABIGATRAN
     Indication: Product used for unknown indication
  121. FUROSEMIDE [Concomitant]
     Active Substance: FUROSEMIDE
     Indication: Product used for unknown indication
  122. ALPRAZOLAM [Concomitant]
     Active Substance: ALPRAZOLAM
     Indication: Product used for unknown indication
  123. BETAHISTINE [Concomitant]
     Active Substance: BETAHISTINE
     Indication: Product used for unknown indication
  124. METFORMIN [Concomitant]
     Active Substance: METFORMIN HYDROCHLORIDE
     Indication: Product used for unknown indication
  125. METOCLOPRAMIDE [Concomitant]
     Active Substance: METOCLOPRAMIDE
     Indication: Product used for unknown indication
  126. RAMIPRIL [Concomitant]
     Active Substance: RAMIPRIL
     Indication: Product used for unknown indication
  127. POTASSIUM CHLORIDE [Concomitant]
     Active Substance: POTASSIUM CHLORIDE
     Indication: Product used for unknown indication
  128. CITALOPRAM [Concomitant]
     Active Substance: CITALOPRAM
     Indication: Product used for unknown indication
  129. VORTIOXETINE [Concomitant]
     Active Substance: VORTIOXETINE
     Indication: Product used for unknown indication

REACTIONS (50)
  - Dementia [Unknown]
  - Cognitive disorder [Unknown]
  - Mobility decreased [Recovering/Resolving]
  - Urinary retention [Unknown]
  - Fall [Recovering/Resolving]
  - Drug dependence [Unknown]
  - Melaena [Unknown]
  - Peripheral circulatory failure [Unknown]
  - Muscle rigidity [Unknown]
  - Bradykinesia [Unknown]
  - Diabetes mellitus inadequate control [Unknown]
  - Sedation [Recovering/Resolving]
  - Motor dysfunction [Recovering/Resolving]
  - Insomnia [Unknown]
  - Depression [Unknown]
  - Dizziness [Recovering/Resolving]
  - Constipation [Unknown]
  - Arthralgia [Unknown]
  - Osteoporosis [Unknown]
  - Parkinsonism [Unknown]
  - Hiatus hernia [Unknown]
  - Atrioventricular block first degree [Recovering/Resolving]
  - Gastric polyps [Unknown]
  - Hyperglycaemia [Unknown]
  - Syncope [Unknown]
  - Dysuria [Unknown]
  - Hypotonia [Unknown]
  - Dysuria [Unknown]
  - Blood creatine increased [Unknown]
  - Stupor [Unknown]
  - Initial insomnia [Unknown]
  - Blood urea increased [Unknown]
  - Neuroglycopenia [Unknown]
  - Multiple drug therapy [Unknown]
  - Blood cholesterol decreased [Unknown]
  - Labelled drug-drug interaction issue [Recovered/Resolved]
  - Drug interaction [Unknown]
  - Blood pressure decreased [Unknown]
  - Hypoglycaemia [Unknown]
  - Hypotension [Recovering/Resolving]
  - Pruritus [Unknown]
  - Abdominal pain upper [Unknown]
  - Nausea [Unknown]
  - Drug ineffective [Unknown]
  - Product use in unapproved indication [Unknown]
  - Medication error [Unknown]
  - Product use issue [Unknown]
  - Off label use [Unknown]
  - Product administration error [Unknown]
  - Incorrect product administration duration [Unknown]

NARRATIVE: CASE EVENT DATE: 20210101
